FAERS Safety Report 19088733 (Version 2)
Quarter: 2021Q2

REPORT INFORMATION
  Report Type: Spontaneous
  Country: JP (occurrence: JP)
  Receive Date: 20210403
  Receipt Date: 20210413
  Transmission Date: 20210717
  Serious: Yes (Death, Other)
  Sender: FDA-Public Use
  Company Number: JP-SUN PHARMACEUTICAL INDUSTRIES LTD-2021RR-288464

PATIENT
  Age: 43 Year
  Sex: Female

DRUGS (8)
  1. METHOTREXATE. [Suspect]
     Active Substance: METHOTREXATE
     Dosage: 10 MILLIGRAM/SQ. METER, ON DAYS 3 AND 6
     Route: 065
  2. METHOTREXATE. [Suspect]
     Active Substance: METHOTREXATE
     Indication: INTESTINAL T-CELL LYMPHOMA RECURRENT
     Dosage: 15 MILLIGRAM/SQ. METER, ON DAY 1
     Route: 065
  3. DEXAMETHASONE. [Suspect]
     Active Substance: DEXAMETHASONE
     Indication: INTESTINAL T-CELL LYMPHOMA STAGE IV
     Dosage: UNK
     Route: 065
  4. CISPLATIN. [Suspect]
     Active Substance: CISPLATIN
     Indication: INTESTINAL T-CELL LYMPHOMA STAGE IV
     Dosage: UNK
     Route: 065
  5. PROCARBAZINE [Suspect]
     Active Substance: PROCARBAZINE
     Indication: INTESTINAL T-CELL LYMPHOMA RECURRENT
     Dosage: UNK
     Route: 065
  6. GEMCITABINE. [Suspect]
     Active Substance: GEMCITABINE
     Indication: INTESTINAL T-CELL LYMPHOMA STAGE IV
     Dosage: UNK
     Route: 065
  7. VINCRISTINE [Suspect]
     Active Substance: VINCRISTINE
     Indication: INTESTINAL T-CELL LYMPHOMA RECURRENT
     Dosage: UNK
     Route: 065
  8. TACROLIMUS. [Suspect]
     Active Substance: TACROLIMUS
     Indication: GRAFT VERSUS HOST DISEASE
     Dosage: 0.02 MILLIGRAM/KILOGRAM, FROM DAY 1
     Route: 065

REACTIONS (6)
  - Neutropenia [Unknown]
  - Therapy partial responder [Unknown]
  - Pyelonephritis [Unknown]
  - Disease progression [Fatal]
  - Intestinal T-cell lymphoma recurrent [Unknown]
  - Drug ineffective [Unknown]
